FAERS Safety Report 5270267-9 (Version None)
Quarter: 2007Q1

REPORT INFORMATION
  Report Type: 
  Country: None (occurrence: None)
  Receive Date: 20070320
  Receipt Date: 20070313
  Transmission Date: 20070707
  Serious: Yes (Death, Life-Threatening, Hospitalization)
  Sender: FDA-Public Use
  Company Number: FR-ELI_LILLY_AND_COMPANY-FR200609004313

PATIENT
  Age: 52 Year
  Sex: Male
  Weight: 102 kg

DRUGS (11)
  1. PEMETREXED [Suspect]
     Indication: CARCINOMA IN SITU OF TRACHEA
     Dosage: 500 MG/M2, OTHER
     Route: 042
     Dates: start: 20060530, end: 20060719
  2. SPECIAFOLDINE [Concomitant]
     Indication: VITAMIN SUPPLEMENTATION
  3. VITAMIN B-12 [Concomitant]
     Indication: VITAMIN SUPPLEMENTATION
  4. DEXAMETHASONE [Concomitant]
     Indication: PROPHYLAXIS
     Dosage: 4 MG, 2/D
     Route: 048
  5. CORTANCYL [Concomitant]
     Indication: PREMEDICATION
     Dosage: 80 MG, DAILY (1/D)
     Route: 065
     Dates: start: 20060628, end: 20060630
  6. CORTANCYL [Concomitant]
     Dosage: 40 MG, DAILY (1/D)
     Route: 065
     Dates: start: 20060701, end: 20060710
  7. CORTANCYL [Concomitant]
     Dosage: 20 MG, DAILY (1/D)
     Route: 065
     Dates: start: 20060711, end: 20060721
  8. SKENAN [Concomitant]
     Dates: start: 20060701
  9. MESTINON [Concomitant]
     Dates: start: 20060701
  10. FORLAX [Concomitant]
     Dates: start: 20060701
  11. VITAMIN B1 AND B6 [Concomitant]
     Dates: start: 20060701

REACTIONS (11)
  - ANAEMIA [None]
  - BLOOD CREATINE INCREASED [None]
  - CATHETER SITE PHLEBITIS [None]
  - DIABETES MELLITUS [None]
  - GAMMA-GLUTAMYLTRANSFERASE INCREASED [None]
  - HEPATIC FUNCTION ABNORMAL [None]
  - INTERSTITIAL LUNG DISEASE [None]
  - MALIGNANT NEOPLASM PROGRESSION [None]
  - PERICARDITIS [None]
  - RASH GENERALISED [None]
  - RECALL PHENOMENON [None]
